FAERS Safety Report 9867521 (Version 1)
Quarter: 2014Q1

REPORT INFORMATION
  Report Type: Spontaneous
  Country: BE (occurrence: BE)
  Receive Date: 20140204
  Receipt Date: 20140204
  Transmission Date: 20141002
  Serious: Yes (Death)
  Sender: FDA-Public Use
  Company Number: BE-BRISTOL-MYERS SQUIBB COMPANY-20093993

PATIENT
  Age: 78 Year
  Sex: Male

DRUGS (1)
  1. IPILIMUMAB [Suspect]

REACTIONS (1)
  - Death [Fatal]
